FAERS Safety Report 25399445 (Version 2)
Quarter: 2025Q2

REPORT INFORMATION
  Report Type: Report from Study
  Country: US (occurrence: US)
  Receive Date: 20250605
  Receipt Date: 20250623
  Transmission Date: 20250717
  Serious: Yes (Other)
  Sender: TEVA
  Company Number: US-TEVA-VS-3337551

PATIENT
  Age: 51 Year
  Sex: Female

DRUGS (2)
  1. AUSTEDO XR [Suspect]
     Active Substance: DEUTETRABENAZINE
     Indication: Tardive dyskinesia
     Dosage: QAM
     Route: 048
     Dates: start: 20250512
  2. AUSTEDO XR [Suspect]
     Active Substance: DEUTETRABENAZINE
     Indication: Tardive dyskinesia
     Route: 048

REACTIONS (8)
  - Suicidal ideation [Unknown]
  - Drug ineffective [Unknown]
  - Somnolence [Unknown]
  - Drug ineffective [Unknown]
  - Affective disorder [Unknown]
  - Increased need for sleep [Unknown]
  - Muscle spasms [Unknown]
  - Nausea [Unknown]
